FAERS Safety Report 15904073 (Version 1)
Quarter: 2019Q1

REPORT INFORMATION
  Report Type: Spontaneous
  Country: US (occurrence: US)
  Receive Date: 20190204
  Receipt Date: 20190204
  Transmission Date: 20190417
  Serious: No
  Sender: FDA-Public Use
  Company Number: US-AUROBINDO-AUR-APL-2018-014415

PATIENT
  Age: 5 Year
  Sex: Male
  Weight: 17.69 kg

DRUGS (1)
  1. CEFDINIR FOR ORAL SUSPENSION 250 MG/5 ML [Suspect]
     Active Substance: CEFDINIR
     Indication: EAR INFECTION
     Dosage: UNK
     Route: 048
     Dates: start: 20180223

REACTIONS (2)
  - Tympanic membrane perforation [Unknown]
  - Vomiting [Unknown]

NARRATIVE: CASE EVENT DATE: 20180223
